FAERS Safety Report 10485991 (Version 1)
Quarter: 2014Q3

REPORT INFORMATION
  Report Type: Spontaneous
  Country: US (occurrence: None)
  Receive Date: 20140930
  Receipt Date: 20140930
  Transmission Date: 20150326
  Serious: Yes (Hospitalization)
  Sender: FDA-Public Use
  Company Number: None

PATIENT
  Age: 60 Year
  Sex: Male
  Weight: 65.8 kg

DRUGS (2)
  1. OXYCODONE [Suspect]
     Active Substance: OXYCODONE
  2. OXYCONTIN [Suspect]
     Active Substance: OXYCODONE HYDROCHLORIDE

REACTIONS (12)
  - Abdominal pain [None]
  - Vomiting [None]
  - Hypophagia [None]
  - Oedema [None]
  - Abdominal distension [None]
  - Hepatic vein thrombosis [None]
  - Constipation [None]
  - Peripheral swelling [None]
  - Ascites [None]
  - Nausea [None]
  - Gastrointestinal sounds abnormal [None]
  - Renal vein thrombosis [None]

NARRATIVE: CASE EVENT DATE: 20140911
